FAERS Safety Report 7669214-1 (Version None)
Quarter: 2011Q3

REPORT INFORMATION
  Report Type: 
  Country: None (occurrence: None)
  Receive Date: 20110808
  Receipt Date: 20110728
  Transmission Date: 20111222
  Serious: Yes (Hospitalization, Other)
  Sender: FDA-Public Use
  Company Number: PHFR2011GB03637

PATIENT
  Sex: Female

DRUGS (12)
  1. KWELLS [Concomitant]
     Dosage: 300 UG, UNK
     Route: 048
     Dates: start: 20110408, end: 20110505
  2. PROCYCLIDINE HYDROCHLORIDE 2MG TAB [Concomitant]
     Dosage: 10 MG, UNK
     Route: 048
     Dates: start: 20080101, end: 20110505
  3. OLANZAPINE [Concomitant]
     Dosage: 20 MG, UNK
     Route: 048
     Dates: start: 20110619
  4. DEPAKOTE [Concomitant]
     Dosage: 2000MG UNK
     Dates: start: 20080101
  5. RISPERIDONE [Concomitant]
     Dosage: 6 MG, UNK
     Route: 048
     Dates: start: 20101124, end: 20110505
  6. ESCITALOPRAM [Concomitant]
     Dosage: 20 MG, UNK
     Route: 048
     Dates: start: 20100909, end: 20110505
  7. SIMVASTATIN [Concomitant]
     Dosage: 40 MG, UNK
     Route: 048
     Dates: start: 20101001
  8. CLOZAPINE [Suspect]
     Indication: SCHIZOPHRENIA
     Dosage: 375 MG
     Route: 048
     Dates: start: 20110321
  9. LACTULOSE [Concomitant]
     Dosage: 10 ML, UNK
     Route: 048
     Dates: start: 20110406
  10. TRIMETHOPRIM [Concomitant]
     Dosage: 400 MG, UNK
     Route: 048
     Dates: start: 20110328, end: 20110408
  11. FUROSEMIDE [Concomitant]
     Dosage: 40 MG, UNK
     Route: 048
     Dates: start: 20110406, end: 20110503
  12. OMEPRAZOLE [Concomitant]
     Dosage: 20 MG, UNK
     Route: 048
     Dates: start: 20110622

REACTIONS (8)
  - VOMITING [None]
  - WHITE BLOOD CELL COUNT INCREASED [None]
  - URINARY INCONTINENCE [None]
  - MALAISE [None]
  - NEUTROPHIL COUNT INCREASED [None]
  - DIARRHOEA [None]
  - WEIGHT DECREASED [None]
  - FAECAL INCONTINENCE [None]
